FAERS Safety Report 17699540 (Version 1)
Quarter: 2020Q2

REPORT INFORMATION
  Report Type: Report from Study
  Country: TR (occurrence: TR)
  Receive Date: 20200423
  Receipt Date: 20200423
  Transmission Date: 20200714
  Serious: Yes (Hospitalization)
  Sender: FDA-Public Use
  Company Number: TR-TEVA-2020-TR-1227928

PATIENT
  Age: 9 Year
  Sex: Male

DRUGS (2)
  1. AMOXICILLIN W/CLAVULANIC ACID [Suspect]
     Active Substance: AMOXICILLIN\CLAVULANIC ACID
     Indication: ANTIBIOTIC THERAPY
     Route: 065
  2. PARACETAMOL [Suspect]
     Active Substance: ACETAMINOPHEN
     Indication: ANALGESIC INTERVENTION SUPPORTIVE THERAPY
     Route: 065

REACTIONS (3)
  - Corneal epithelium defect [Unknown]
  - Stevens-Johnson syndrome [Recovered/Resolved with Sequelae]
  - Toxic epidermal necrolysis [Recovered/Resolved with Sequelae]
